FAERS Safety Report 9632241 (Version 2)
Quarter: 2013Q4

REPORT INFORMATION
  Report Type: Spontaneous
  Country: DE (occurrence: DE)
  Receive Date: 20131018
  Receipt Date: 20131018
  Transmission Date: 20140711
  Serious: Yes (Death, Hospitalization)
  Sender: FDA-Public Use
  Company Number: DE-JNJFOC-20130500240

PATIENT
  Age: 78 Year
  Sex: Male

DRUGS (14)
  1. XARELTO [Suspect]
     Indication: CEREBROVASCULAR ACCIDENT PROPHYLAXIS
     Route: 048
     Dates: start: 20121101, end: 20130421
  2. XARELTO [Suspect]
     Indication: ATRIAL FIBRILLATION
     Route: 048
     Dates: start: 20121101, end: 20130421
  3. OSTEOTRIOL [Concomitant]
     Route: 065
  4. FENOFIBRAT [Concomitant]
     Route: 065
  5. MOTILIUM [Concomitant]
     Route: 065
  6. CARBIDOPA W/LEVODOPA [Concomitant]
     Route: 065
  7. BISOPROLOL [Concomitant]
     Route: 065
  8. VESIKUR [Concomitant]
     Route: 065
  9. TOREM [Concomitant]
     Route: 065
  10. PANTOZOL [Concomitant]
     Route: 065
  11. RAMIPRIL [Concomitant]
     Route: 065
  12. BIFITERAL [Concomitant]
     Route: 065
  13. MADOPAR [Concomitant]
     Route: 065
  14. FENISTIL [Concomitant]
     Route: 065

REACTIONS (2)
  - Traumatic intracranial haemorrhage [Fatal]
  - Fall [Fatal]
